FAERS Safety Report 5599946-0 (Version None)
Quarter: 2008Q1

REPORT INFORMATION
  Report Type: 
  Country: None (occurrence: None)
  Receive Date: 20080123
  Receipt Date: 20080111
  Transmission Date: 20080703
  Serious: Yes (Hospitalization)
  Sender: FDA-Public Use
  Company Number: FR-AVENTIS-200810138FR

PATIENT
  Age: 71 Year
  Sex: Male

DRUGS (3)
  1. CLAFORAN [Suspect]
     Indication: ENDOCARDITIS
     Route: 042
     Dates: start: 20070925, end: 20071111
  2. OFLOCET                            /00731801/ [Suspect]
     Dates: start: 20070925, end: 20071003
  3. GENTALLINE [Suspect]
     Indication: ENDOCARDITIS
     Route: 042
     Dates: start: 20071003, end: 20071017

REACTIONS (1)
  - RENAL FAILURE ACUTE [None]
